FAERS Safety Report 9016185 (Version 2)
Quarter: 2014Q3

REPORT INFORMATION
  Report Type: Spontaneous
  Country: US (occurrence: US)
  Receive Date: 20130116
  Receipt Date: 20140826
  Transmission Date: 20150326
  Serious: Yes (Hospitalization, Disabling, Other)
  Sender: FDA-Public Use
  Company Number: US-009507513-1301USA007528

PATIENT
  Sex: Female

DRUGS (1)
  1. NUVARING [Suspect]
     Active Substance: ETHINYL ESTRADIOL\ETONOGESTREL
     Indication: OVARIAN CYST
     Dosage: 0.12-0.015 MG 1 RING ONE A MONTH LEAVE IN PLACE FOR 3 WEEKS REMOVE FOR 1 WEEK
     Route: 067
     Dates: start: 20091228, end: 20110126

REACTIONS (5)
  - Deep vein thrombosis [Unknown]
  - Pulmonary embolism [Unknown]
  - Cardiac ventricular thrombosis [Unknown]
  - Thrombophlebitis superficial [Unknown]
  - Off label use [Unknown]

NARRATIVE: CASE EVENT DATE: 2010
